FAERS Safety Report 25978106 (Version 1)
Quarter: 2025Q4

REPORT INFORMATION
  Report Type: Spontaneous
  Country: CA (occurrence: CA)
  Receive Date: 20251030
  Receipt Date: 20251030
  Transmission Date: 20260118
  Serious: Yes (Other)
  Sender: CELLTRION
  Company Number: CA-CELLTRION INC.-2025CA021405

PATIENT

DRUGS (1)
  1. INFLIXIMAB [Suspect]
     Active Substance: INFLIXIMAB
     Indication: Crohn^s disease
     Dosage: REMDANTRY - MAINTENANCE - 600 MG - IV
     Route: 042
     Dates: start: 20250409

REACTIONS (2)
  - Artificial insemination [Unknown]
  - Off label use [Unknown]

NARRATIVE: CASE EVENT DATE: 20250915
